FAERS Safety Report 9670867 (Version 1)
Quarter: 2013Q4

REPORT INFORMATION
  Report Type: Spontaneous
  Country: CH (occurrence: CH)
  Receive Date: 20131106
  Receipt Date: 20131106
  Transmission Date: 20140711
  Serious: Yes (Hospitalization)
  Sender: FDA-Public Use
  Company Number: PHHY2013CH124495

PATIENT
  Age: 69 Year
  Sex: Female

DRUGS (4)
  1. DICLOFENAC [Suspect]
     Indication: CRYSTAL ARTHROPATHY
  2. METHYLPREDNISOLONE [Suspect]
     Indication: CRYSTAL ARTHROPATHY
     Dosage: 100 MG, UNK
     Route: 042
  3. METHYLPREDNISOLONE [Suspect]
     Dosage: 40 MG, UNK
  4. PREDNISOLONE [Suspect]
     Dosage: 40 MG, UNK
     Route: 048

REACTIONS (5)
  - Acute febrile neutrophilic dermatosis [Recovered/Resolved]
  - Pyrexia [Recovered/Resolved]
  - Asthenia [Recovered/Resolved]
  - Rash [Recovered/Resolved]
  - Neutrophilic dermatosis [Recovered/Resolved]
